FAERS Safety Report 5974971-6 (Version None)
Quarter: 2008Q4

REPORT INFORMATION
  Report Type: 
  Country: None (occurrence: None)
  Receive Date: 20081128
  Receipt Date: 20081114
  Transmission Date: 20090506
  Serious: Yes (Hospitalization)
  Sender: FDA-Public Use
  Company Number: 036784

PATIENT
  Age: 16 Year
  Sex: Male

DRUGS (2)
  1. CLARAVIS [Suspect]
     Indication: ACNE
     Dosage: 40 MG, BID, ORAL
     Route: 048
     Dates: end: 20081031
  2. NEXIUM /UNK/ (ESOMEPRAZOLE) [Concomitant]

REACTIONS (2)
  - HERNIA [None]
  - STAPHYLOCOCCAL INFECTION [None]
